FAERS Safety Report 17459701 (Version 1)
Quarter: 2020Q1

REPORT INFORMATION
  Report Type: Spontaneous
  Country: US (occurrence: US)
  Receive Date: 20200225
  Receipt Date: 20200225
  Transmission Date: 20200409
  Serious: No
  Sender: FDA-Public Use
  Company Number: US-ROCHE-2400558

PATIENT
  Age: 14 Year
  Sex: Male

DRUGS (2)
  1. SOMATROPIN. [Suspect]
     Active Substance: SOMATROPIN
     Indication: GROWTH RETARDATION
     Dosage: DAILY
     Route: 058
     Dates: start: 20190503
  2. SOMATROPIN. [Suspect]
     Active Substance: SOMATROPIN
     Route: 058
     Dates: start: 20190504

REACTIONS (6)
  - Nausea [Unknown]
  - Product dose omission [Unknown]
  - Neuralgia [Unknown]
  - Vomiting [Unknown]
  - Injection site pain [Unknown]
  - Headache [Unknown]

NARRATIVE: CASE EVENT DATE: 20190504
